FAERS Safety Report 9543633 (Version 2)
Quarter: 2014Q2

REPORT INFORMATION
  Report Type: Spontaneous
  Country: US (occurrence: US)
  Receive Date: 20130923
  Receipt Date: 20140627
  Transmission Date: 20141212
  Serious: Yes (Hospitalization, Other)
  Sender: FDA-Public Use
  Company Number: US-ROCHE-1278181

PATIENT
  Sex: Female

DRUGS (6)
  1. BONIVA [Suspect]
     Indication: OSTEOPOROSIS
     Route: 065
  2. ASPIRIN [Concomitant]
     Route: 048
  3. DIOVAN [Concomitant]
     Route: 048
  4. IBUPROFEN [Concomitant]
     Dosage: AS NEEDED
     Route: 065
  5. LEVOXYL [Concomitant]
     Route: 048
  6. PERCOCET [Concomitant]
     Dosage: DOSE: 5/325 MG AS NEEDED
     Route: 065

REACTIONS (7)
  - Humerus fracture [Unknown]
  - Injury [Unknown]
  - Anxiety [Unknown]
  - Emotional distress [Unknown]
  - Osteonecrosis [Unknown]
  - Tooth abscess [Unknown]
  - Osteonecrosis of jaw [Unknown]
